FAERS Safety Report 12275523 (Version 2)
Quarter: 2016Q2

REPORT INFORMATION
  Report Type: Report from Study
  Country: US (occurrence: US)
  Receive Date: 20160415
  Receipt Date: 20160512
  Transmission Date: 20160815
  Serious: No
  Sender: FDA-Public Use
  Company Number: US-UCBSA-2015003418

PATIENT
  Age: 67 Year
  Sex: Female

DRUGS (1)
  1. ROTIGOTINE [Suspect]
     Active Substance: ROTIGOTINE
     Indication: RESTLESS LEGS SYNDROME
     Dosage: 2 MG, ONCE DAILY (QD)
     Dates: start: 20141209, end: 201601

REACTIONS (7)
  - Adverse reaction [Recovering/Resolving]
  - Rash macular [Recovering/Resolving]
  - Application site erythema [Recovering/Resolving]
  - Hypersensitivity [Unknown]
  - Application site pruritus [Recovering/Resolving]
  - Erythema [Unknown]
  - Pruritus [Unknown]

NARRATIVE: CASE EVENT DATE: 201412
